FAERS Safety Report 9834487 (Version 1)
Quarter: 2014Q1

REPORT INFORMATION
  Report Type: Spontaneous
  Country: DK (occurrence: DK)
  Receive Date: 20140122
  Receipt Date: 20140122
  Transmission Date: 20141002
  Serious: Yes (Death, Hospitalization, Other)
  Sender: FDA-Public Use
  Company Number: DK-ELI_LILLY_AND_COMPANY-DK201401006057

PATIENT
  Sex: 0

DRUGS (3)
  1. OLANZAPINE [Suspect]
     Indication: PRODUCT USED FOR UNKNOWN INDICATION
     Dosage: 40 MG, QD
     Route: 065
  2. OLANZAPINE [Suspect]
     Dosage: 60 MG, QD
  3. RISPERIDONE [Concomitant]
     Dosage: 6 MG, OTHER

REACTIONS (3)
  - Cerebellar haemorrhage [Fatal]
  - Sepsis [Fatal]
  - Neuroleptic malignant syndrome [Unknown]
